FAERS Safety Report 9016868 (Version 1)
Quarter: 2013Q1

REPORT INFORMATION
  Report Type: Spontaneous
  Country: US (occurrence: None)
  Receive Date: 20130116
  Receipt Date: 20130116
  Transmission Date: 20140127
  Serious: No
  Sender: FDA-Public Use
  Company Number: US-HORIZON-DUE-0001-2012

PATIENT
  Sex: Male

DRUGS (6)
  1. DUEXIS [Suspect]
     Indication: OSTEOARTHRITIS
     Dates: start: 201201, end: 20120203
  2. VYTORIN [Concomitant]
  3. FLOMAX [Concomitant]
  4. BENICAR HCT [Concomitant]
  5. NIASPAN [Concomitant]
  6. LOVAZA [Concomitant]

REACTIONS (2)
  - Abdominal pain upper [None]
  - Diarrhoea [None]
